FAERS Safety Report 16922190 (Version 1)
Quarter: 2019Q4

REPORT INFORMATION
  Report Type: Report from Study
  Country: None (occurrence: US)
  Receive Date: 20191015
  Receipt Date: 20191015
  Transmission Date: 20200122
  Serious: Yes (Hospitalization, Other)
  Sender: FDA-Public Use
  Company Number: US-ABBVIE-19K-163-2912108-00

PATIENT
  Sex: Female
  Weight: 93.07 kg

DRUGS (1)
  1. HUMIRA [Suspect]
     Active Substance: ADALIMUMAB
     Indication: RHEUMATOID ARTHRITIS
     Route: 058
     Dates: start: 2012

REACTIONS (10)
  - Blood magnesium decreased [Recovered/Resolved]
  - Gait inability [Recovered/Resolved]
  - Blood sodium decreased [Recovered/Resolved]
  - Gastrointestinal disorder [Recovered/Resolved]
  - Intestinal obstruction [Recovered/Resolved]
  - Blood potassium decreased [Recovered/Resolved]
  - Sepsis [Recovered/Resolved]
  - Arrhythmia [Recovered/Resolved]
  - Abdominal hernia [Recovered/Resolved]
  - Dysuria [Recovered/Resolved]

NARRATIVE: CASE EVENT DATE: 2018
